FAERS Safety Report 18568467 (Version 1)
Quarter: 2020Q4

REPORT INFORMATION
  Report Type: Spontaneous
  Country: US (occurrence: US)
  Receive Date: 20201202
  Receipt Date: 20201202
  Transmission Date: 20210114
  Serious: Yes (Hospitalization, Other)
  Sender: FDA-Public Use
  Company Number: US-SA-2020SA337501

PATIENT

DRUGS (7)
  1. PLAVIX [Suspect]
     Active Substance: CLOPIDOGREL BISULFATE
     Indication: CARDIOVASCULAR DISORDER
     Dosage: UNK
     Dates: start: 20180301
  2. MULTIVITAMINS [ASCORBIC ACID;ERGOCALCIFEROL;FOLIC ACID;NICOTINAMIDE;PA [Concomitant]
     Active Substance: VITAMINS
     Dosage: UNK
     Dates: start: 20000101
  3. TESTOSTERONE ENANTHATE. [Concomitant]
     Active Substance: TESTOSTERONE ENANTHATE
     Dosage: UNK
     Dates: start: 20120101
  4. ATORVASTATIN [Concomitant]
     Active Substance: ATORVASTATIN
     Dosage: UNK
     Dates: start: 20191115
  5. COREG [Concomitant]
     Active Substance: CARVEDILOL
     Dosage: UNK
     Dates: start: 20200811
  6. ZETIA [Concomitant]
     Active Substance: EZETIMIBE
     Dosage: UNK
     Dates: start: 20200811
  7. LISINOPRIL. [Concomitant]
     Active Substance: LISINOPRIL
     Dosage: UNK
     Dates: start: 20050101

REACTIONS (2)
  - Rectal haemorrhage [Recovered/Resolved]
  - Gastrointestinal haemorrhage [Recovering/Resolving]

NARRATIVE: CASE EVENT DATE: 20200915
